FAERS Safety Report 6855202-1 (Version None)
Quarter: 2010Q3

REPORT INFORMATION
  Report Type: 
  Country: None (occurrence: None)
  Receive Date: 20100718
  Receipt Date: 20100706
  Transmission Date: 20110219
  Serious: Yes (Death, Life-Threatening)
  Sender: FDA-Public Use
  Company Number: JP-BRISTOL-MYERS SQUIBB COMPANY-15179047

PATIENT
  Age: 68 Year
  Sex: Male

DRUGS (5)
  1. ABILIFY [Suspect]
     Route: 048
  2. GASMOTIN [Concomitant]
  3. BIOFERMIN [Concomitant]
  4. MAGNESIUM OXIDE [Concomitant]
  5. LANSOPRAZOLE [Concomitant]

REACTIONS (2)
  - HEPATIC FUNCTION ABNORMAL [None]
  - STRESS CARDIOMYOPATHY [None]
